FAERS Safety Report 7733027-2 (Version None)
Quarter: 2011Q3

REPORT INFORMATION
  Report Type: 
  Country: None (occurrence: None)
  Receive Date: 20110901
  Receipt Date: 20110728
  Transmission Date: 20111222
  Serious: No
  Sender: FDA-Public Use
  Company Number: KV201100132

PATIENT
  Age: 30 Year
  Sex: Female

DRUGS (3)
  1. MAKENA [Suspect]
     Indication: PREMATURE DELIVERY
     Dosage: 250 MG, ONCE WEEKLY, INTRAMUSCULAR
     Route: 030
     Dates: start: 20110630, end: 20110707
  2. ANTIEMETICS AND ANTINAUSEANTS [Concomitant]
  3. PRENATAL VITAMINS /01549301/ (ASCORBIC, ACID, BIOTIN, MINERALS NOS, NI [Concomitant]

REACTIONS (1)
  - MIGRAINE [None]
